FAERS Safety Report 4997452-5 (Version None)
Quarter: 2006Q2

REPORT INFORMATION
  Report Type: 
  Country: None (occurrence: None)
  Receive Date: 20060509
  Receipt Date: 20050831
  Transmission Date: 20061013
  Serious: Yes (Hospitalization, Other)
  Sender: FDA-Public Use
  Company Number: US-MERCK-0509USA00204

PATIENT
  Age: 46 Year
  Sex: Female
  Weight: 61 kg

DRUGS (1)
  1. VIOXX [Suspect]
     Indication: RHEUMATOID ARTHRITIS
     Route: 048
     Dates: start: 20001001, end: 20040928

REACTIONS (3)
  - CEREBROVASCULAR ACCIDENT [None]
  - HYPERSENSITIVITY [None]
  - MYOCARDIAL INFARCTION [None]
